FAERS Safety Report 12208032 (Version 1)
Quarter: 2016Q1

REPORT INFORMATION
  Report Type: Spontaneous
  Country: US (occurrence: US)
  Receive Date: 20160324
  Receipt Date: 20160324
  Transmission Date: 20160526
  Serious: No
  Sender: FDA-Public Use
  Company Number: US-ASTRAZENECA-2016SE16785

PATIENT
  Sex: Female

DRUGS (2)
  1. TOPROL XL [Suspect]
     Active Substance: METOPROLOL SUCCINATE
     Dosage: METOPROLOL SUCCINATE -UNK MANUFACTURER
     Route: 048
  2. TOPROL XL [Suspect]
     Active Substance: METOPROLOL SUCCINATE
     Route: 048

REACTIONS (7)
  - Malaise [Unknown]
  - Fatigue [Unknown]
  - Tachycardia [Unknown]
  - Nervousness [Unknown]
  - Nightmare [Unknown]
  - Insomnia [Unknown]
  - Hypertension [Unknown]
